FAERS Safety Report 19438460 (Version 2)
Quarter: 2021Q2

REPORT INFORMATION
  Report Type: Report from Study
  Country: PH (occurrence: PH)
  Receive Date: 20210619
  Receipt Date: 20210629
  Transmission Date: 20210717
  Serious: Yes (Death, Hospitalization)
  Sender: FDA-Public Use
  Company Number: NVSC2021PH127683

PATIENT
  Age: 24 Year
  Sex: Male

DRUGS (1)
  1. TASIGNA [Suspect]
     Active Substance: NILOTINIB
     Indication: CHRONIC MYELOID LEUKAEMIA
     Dosage: 1 DF, QD
     Route: 065
     Dates: start: 202104

REACTIONS (6)
  - Platelet count decreased [Unknown]
  - Pneumonia [Fatal]
  - Septic shock [Fatal]
  - Haemoglobin decreased [Unknown]
  - Chronic myeloid leukaemia transformation [Fatal]
  - Lymphadenopathy [Unknown]

NARRATIVE: CASE EVENT DATE: 202104
